FAERS Safety Report 15486584 (Version 3)
Quarter: 2019Q2

REPORT INFORMATION
  Report Type: Report from Study
  Country: CA (occurrence: CA)
  Receive Date: 20181011
  Receipt Date: 20190417
  Transmission Date: 20190711
  Serious: Yes (Other)
  Sender: FDA-Public Use
  Company Number: CA-BIOGEN-2018BI00642212

PATIENT
  Age: 52 Year
  Sex: Male

DRUGS (1)
  1. TECFIDERA [Suspect]
     Active Substance: DIMETHYL FUMARATE
     Indication: MULTIPLE SCLEROSIS
     Dosage: MAINTENANCE DOSE
     Route: 050
     Dates: start: 20180329

REACTIONS (4)
  - Basophil count increased [Unknown]
  - Monocyte count increased [Unknown]
  - Bilirubin urine present [Not Recovered/Not Resolved]
  - Urobilinogen urine increased [Not Recovered/Not Resolved]

NARRATIVE: CASE EVENT DATE: 20180928
